FAERS Safety Report 5044618-4 (Version None)
Quarter: 2006Q3

REPORT INFORMATION
  Report Type: 
  Country: None (occurrence: None)
  Receive Date: 20060706
  Receipt Date: 20060328
  Transmission Date: 20061208
  Serious: Yes (Hospitalization)
  Sender: FDA-Public Use
  Company Number: US-BRISTOL-MYERS SQUIBB COMPANY-13330402

PATIENT
  Age: 48 Year
  Sex: Female

DRUGS (7)
  1. CISPLATIN [Suspect]
     Indication: NON-SMALL CELL LUNG CANCER
     Route: 041
     Dates: start: 20060307, end: 20060307
  2. TS-1 [Suspect]
     Indication: NON-SMALL CELL LUNG CANCER
     Route: 048
     Dates: start: 20060307, end: 20060320
  3. SINGULAIR [Concomitant]
     Indication: WHEEZING
     Route: 048
     Dates: start: 20050101
  4. AMITRIPTYLINE HCL [Concomitant]
     Indication: WHEEZING
     Route: 048
     Dates: start: 20050101
  5. AMBIEN [Concomitant]
     Indication: INSOMNIA
     Route: 048
     Dates: start: 20050101
  6. LASIX [Concomitant]
     Indication: HYPERTENSION
     Route: 048
     Dates: start: 20060101
  7. COUMADIN [Concomitant]
     Route: 048
     Dates: start: 20060316

REACTIONS (5)
  - ANAEMIA [None]
  - BACTERIAL INFECTION [None]
  - CULTURE URINE POSITIVE [None]
  - PNEUMONIA [None]
  - URINARY TRACT INFECTION [None]
